FAERS Safety Report 6207603-2 (Version None)
Quarter: 2009Q2

REPORT INFORMATION
  Report Type: 
  Country: None (occurrence: None)
  Receive Date: 20090528
  Receipt Date: 20090520
  Transmission Date: 20091009
  Serious: Yes (Death)
  Sender: FDA-Public Use
  Company Number: SE-WYE-G03711509

PATIENT

DRUGS (1)
  1. RELISTOR [Suspect]

REACTIONS (1)
  - INTESTINAL PERFORATION [None]
